FAERS Safety Report 21519136 (Version 1)
Quarter: 2022Q4

REPORT INFORMATION
  Report Type: Spontaneous
  Country: US (occurrence: US)
  Receive Date: 20221028
  Receipt Date: 20221028
  Transmission Date: 20230113
  Serious: No
  Sender: FDA-Public Use
  Company Number: ALC2022US004117

PATIENT
  Age: 92 Year
  Sex: Male
  Weight: 80 kg

DRUGS (1)
  1. INVELTYS [Suspect]
     Active Substance: LOTEPREDNOL ETABONATE
     Indication: Product used for unknown indication
     Dosage: 1 DROP, 2X/DAY INTO RIGHT EYE
     Route: 047
     Dates: start: 20220227

REACTIONS (3)
  - Product delivery mechanism issue [Recovered/Resolved]
  - Product quality issue [Recovered/Resolved]
  - Exposure via skin contact [Recovered/Resolved]

NARRATIVE: CASE EVENT DATE: 20220227
